FAERS Safety Report 5765265-2 (Version None)
Quarter: 2008Q2

REPORT INFORMATION
  Report Type: 
  Country: None (occurrence: None)
  Receive Date: 20080609
  Receipt Date: 20080609
  Transmission Date: 20081010
  Serious: Yes (Hospitalization)
  Sender: FDA-Public Use
  Company Number: None

PATIENT
  Sex: Male
  Weight: 102 kg

DRUGS (2)
  1. VANCOMYCIN [Suspect]
     Indication: CELLULITIS
     Dosage: VARIES Q12 HR  IV
     Route: 042
     Dates: start: 20080509, end: 20080520
  2. RIFAMPIN [Suspect]
     Indication: CELLULITIS
     Dosage: 300 MG BIDAC PO
     Route: 048
     Dates: start: 20080509, end: 20080516

REACTIONS (8)
  - ERYTHEMA [None]
  - PETECHIAE [None]
  - PLATELET COUNT DECREASED [None]
  - PRURITUS [None]
  - RASH [None]
  - RASH ERYTHEMATOUS [None]
  - RASH MACULAR [None]
  - WHITE BLOOD CELL COUNT DECREASED [None]
